FAERS Safety Report 9109213 (Version 1)
Quarter: 2013Q1

REPORT INFORMATION
  Report Type: Spontaneous
  Country: US (occurrence: US)
  Receive Date: 20130222
  Receipt Date: 20130222
  Transmission Date: 20140127
  Serious: No
  Sender: FDA-Public Use
  Company Number: US-ASTRAZENECA-2013SE10805

PATIENT
  Age: 711 Month
  Sex: Female
  Weight: 68 kg

DRUGS (4)
  1. ARIMIDEX [Suspect]
     Indication: BREAST CANCER
     Dosage: EVERY DAY
     Route: 048
     Dates: start: 200901, end: 2011
  2. ARIMIDEX [Suspect]
     Indication: BREAST CANCER
     Dosage: GENERIC ANASTRAZOLE
     Dates: start: 2011
  3. GENERIC FOR CLARINEX [Concomitant]
     Indication: MULTIPLE ALLERGIES
  4. PANTOPRAZOLE [Concomitant]
     Indication: GASTROOESOPHAGEAL REFLUX DISEASE

REACTIONS (9)
  - Weight loss poor [Unknown]
  - Loss of libido [Unknown]
  - Psoriasis [Unknown]
  - Weight increased [Unknown]
  - Osteopenia [Unknown]
  - Dermatitis [Unknown]
  - Rash [Unknown]
  - Vulvovaginal dryness [Unknown]
  - Off label use [Unknown]
